FAERS Safety Report 16630768 (Version 4)
Quarter: 2019Q4

REPORT INFORMATION
  Report Type: Spontaneous
  Country: HU (occurrence: HU)
  Receive Date: 20190725
  Receipt Date: 20191127
  Transmission Date: 20200122
  Serious: Yes (Death)
  Sender: FDA-Public Use
  Company Number: PHHY2019HU171955

PATIENT
  Age: 67 Year
  Sex: Female

DRUGS (16)
  1. VINCRISTINE [Suspect]
     Active Substance: VINCRISTINE
     Indication: B-CELL LYMPHOMA
     Route: 065
  2. RITUXIMAB. [Suspect]
     Active Substance: RITUXIMAB
     Indication: DOUBLE HIT LYMPHOMA
  3. CYCLOPHOSPHAMIDE. [Suspect]
     Active Substance: CYCLOPHOSPHAMIDE
     Indication: B-CELL LYMPHOMA
     Dosage: UNK
     Route: 065
  4. RITUXIMAB. [Suspect]
     Active Substance: RITUXIMAB
     Indication: HIGH-GRADE B-CELL LYMPHOMA
  5. DOXORUBICIN [Suspect]
     Active Substance: DOXORUBICIN
     Indication: HIGH-GRADE B-CELL LYMPHOMA
  6. PREDNISOLONE. [Suspect]
     Active Substance: PREDNISOLONE
     Indication: B-CELL LYMPHOMA
     Dosage: UNK
     Route: 065
  7. METHYLPREDNISOLONE. [Suspect]
     Active Substance: METHYLPREDNISOLONE
     Indication: PRODUCT USED FOR UNKNOWN INDICATION
     Dosage: UNK
     Route: 065
  8. VINCRISTINE [Suspect]
     Active Substance: VINCRISTINE
     Indication: DOUBLE HIT LYMPHOMA
  9. RITUXIMAB. [Suspect]
     Active Substance: RITUXIMAB
     Indication: B-CELL LYMPHOMA
     Dosage: UNK
     Route: 065
  10. DOXORUBICIN [Suspect]
     Active Substance: DOXORUBICIN
     Indication: B-CELL LYMPHOMA
     Dosage: UNK
     Route: 065
  11. PREDNISOLONE. [Suspect]
     Active Substance: PREDNISOLONE
     Indication: HIGH-GRADE B-CELL LYMPHOMA
  12. PREDNISONE. [Suspect]
     Active Substance: PREDNISONE
     Indication: DOUBLE HIT LYMPHOMA
     Dosage: UNK
     Route: 065
  13. CYCLOPHOSPHAMIDE. [Suspect]
     Active Substance: CYCLOPHOSPHAMIDE
     Indication: HIGH-GRADE B-CELL LYMPHOMA
  14. CYCLOPHOSPHAMIDE. [Suspect]
     Active Substance: CYCLOPHOSPHAMIDE
     Indication: DOUBLE HIT LYMPHOMA
  15. DOXORUBICIN [Suspect]
     Active Substance: DOXORUBICIN
     Indication: DOUBLE HIT LYMPHOMA
  16. VINCRISTINE [Suspect]
     Active Substance: VINCRISTINE
     Indication: HIGH-GRADE B-CELL LYMPHOMA

REACTIONS (3)
  - Aplasia [Fatal]
  - Cancer in remission [Fatal]
  - Septic shock [Fatal]
